FAERS Safety Report 19533591 (Version 2)
Quarter: 2022Q2

REPORT INFORMATION
  Report Type: Spontaneous
  Country: CA (occurrence: CA)
  Receive Date: 20210713
  Receipt Date: 20220412
  Transmission Date: 20220720
  Serious: Yes (Other)
  Sender: FDA-Public Use
  Company Number: CA-SA-SAC20210709000132

PATIENT
  Age: 60 Year
  Sex: Male

DRUGS (23)
  1. RANITIDINE [Suspect]
     Active Substance: RANITIDINE
     Indication: Product used for unknown indication
     Dosage: 150 MG, QD
     Route: 048
  2. ALLOPURINOL [Suspect]
     Active Substance: ALLOPURINOL
     Indication: Product used for unknown indication
     Dosage: 200 MG, QD
     Route: 048
  3. FLUTICASONE FUROATE [Suspect]
     Active Substance: FLUTICASONE FUROATE
  4. BUDESONIDE\FORMOTEROL FUMARATE [Suspect]
     Active Substance: BUDESONIDE\FORMOTEROL FUMARATE
  5. ALBUTEROL SULFATE [Suspect]
     Active Substance: ALBUTEROL SULFATE
     Indication: Product used for unknown indication
     Dosage: 1 PUFF
     Route: 065
  6. IMMUNE GLOBULIN NOS [Suspect]
     Active Substance: IMMUNE GLOBULIN NOS
     Dosage: UNK
     Route: 055
  7. CICLESONIDE [Suspect]
     Active Substance: CICLESONIDE
     Indication: Product used for unknown indication
     Dosage: 4 PUFF
     Route: 055
  8. PREDNISONE [Suspect]
     Active Substance: PREDNISONE
  9. PREDNISONE [Suspect]
     Active Substance: PREDNISONE
  10. RABEPRAZOLE [Suspect]
     Active Substance: RABEPRAZOLE
  11. MONTELUKAST SODIUM [Suspect]
     Active Substance: MONTELUKAST SODIUM
  12. THEOPHYLLINE [Suspect]
     Active Substance: THEOPHYLLINE
     Indication: Product used for unknown indication
     Dosage: 400 MG, QD
     Route: 048
  13. FLUTICASONE FUROATE [Suspect]
     Active Substance: FLUTICASONE FUROATE
  14. ALBUTEROL SULFATE [Suspect]
     Active Substance: ALBUTEROL SULFATE
  15. ARNUITY ELLIPTA [Suspect]
     Active Substance: FLUTICASONE FUROATE
     Indication: Asthma
     Dosage: 1 PUFF
  16. IPRATROPIUM [Suspect]
     Active Substance: IPRATROPIUM
  17. ALBUTEROL [Suspect]
     Active Substance: ALBUTEROL
  18. SINGULAIR [Suspect]
     Active Substance: MONTELUKAST SODIUM
     Indication: Product used for unknown indication
     Dosage: 10 ML, QD
  19. UMECLIDINIUM BROMIDE [Suspect]
     Active Substance: UMECLIDINIUM BROMIDE
     Indication: Asthma
     Dosage: 1 PIUFFS
     Route: 055
  20. VENTOLIN [Suspect]
     Active Substance: ALBUTEROL SULFATE
     Indication: Asthma
     Dosage: 2 PUFF
     Route: 055
  21. SYMBICORT [Suspect]
     Active Substance: BUDESONIDE\FORMOTEROL FUMARATE DIHYDRATE
     Indication: Asthma
     Dosage: 4 PUFF TWO TIMES A DAY
     Route: 055
  22. RABEPRAZOLE [Concomitant]
     Active Substance: RABEPRAZOLE
     Route: 065
  23. MEPOLIZUMAB [Suspect]
     Active Substance: MEPOLIZUMAB
     Indication: Asthma
     Dosage: 100 MG, QM
     Route: 065
     Dates: start: 20190114

REACTIONS (15)
  - Asthma [Recovered/Resolved]
  - Wheezing [Recovered/Resolved]
  - Dermatitis allergic [Recovered/Resolved]
  - Eczema [Recovered/Resolved]
  - Eye pruritus [Recovered/Resolved]
  - Glaucoma [Recovered/Resolved]
  - Ocular discomfort [Recovered/Resolved]
  - Ocular hyperaemia [Recovered/Resolved]
  - Seasonal allergy [Recovered/Resolved]
  - Therapeutic product effect incomplete [Recovered/Resolved]
  - Adverse drug reaction [Recovered/Resolved]
  - Dermatitis allergic [Recovered/Resolved]
  - Asthma [Recovered/Resolved]
  - Ocular hyperaemia [Recovered/Resolved]
  - Therapeutic product effect incomplete [Recovered/Resolved]
